FAERS Safety Report 14996470 (Version 1)
Quarter: 2018Q2

REPORT INFORMATION
  Report Type: Spontaneous
  Country: US (occurrence: US)
  Receive Date: 20180522
  Receipt Date: 20180522
  Transmission Date: 20180711
  Serious: Yes (Other)
  Sender: FDA-Public Use
  Company Number: None

PATIENT
  Age: 9 Year
  Sex: Male
  Weight: 38.25 kg

DRUGS (1)
  1. SINGULAIR [Suspect]
     Active Substance: MONTELUKAST SODIUM
     Indication: ASTHMA
     Dosage: ?          QUANTITY:1 TABLET(S);?
     Route: 048
     Dates: start: 20161005, end: 20161019

REACTIONS (6)
  - Hallucination [None]
  - Suicidal ideation [None]
  - Crying [None]
  - Disturbance in social behaviour [None]
  - Anxiety [None]
  - Screaming [None]

NARRATIVE: CASE EVENT DATE: 20161019
